FAERS Safety Report 4993247-7 (Version None)
Quarter: 2006Q1

REPORT INFORMATION
  Report Type: 
  Country: None (occurrence: None)
  Receive Date: 20060314
  Receipt Date: 20050122
  Transmission Date: 20060701
  Serious: Yes (Other)
  Sender: FDA-Public Use
  Company Number: 200510339BCC

PATIENT
  Sex: Female

DRUGS (1)
  1. ALEVE [Suspect]
     Dates: start: 20040701

REACTIONS (10)
  - DIARRHOEA [None]
  - DISCOMFORT [None]
  - DYSPNOEA [None]
  - GASTROINTESTINAL PAIN [None]
  - HYPERHIDROSIS [None]
  - NASAL DISCOMFORT [None]
  - ORAL PRURITUS [None]
  - OROPHARYNGEAL SWELLING [None]
  - PRURITUS [None]
  - THROAT TIGHTNESS [None]
